FAERS Safety Report 18673682 (Version 1)
Quarter: 2020Q4

REPORT INFORMATION
  Report Type: Report from Study
  Country: US (occurrence: US)
  Receive Date: 20201229
  Receipt Date: 20201229
  Transmission Date: 20210114
  Serious: No
  Sender: FDA-Public Use
  Company Number: NVSC2020US221641

PATIENT
  Sex: Male

DRUGS (2)
  1. COSENTYX [Suspect]
     Active Substance: SECUKINUMAB
     Dosage: 300 MG, QMO
     Route: 058
  2. COSENTYX [Suspect]
     Active Substance: SECUKINUMAB
     Indication: PSORIASIS
     Dosage: 300 MG, 300MG (2 PENS) SQ AT WEEK 4, THEN 300MG (2 PENS) EVERY 4 WEEKS THEREAFTER
     Route: 058

REACTIONS (2)
  - Inappropriate schedule of product administration [Unknown]
  - Psoriasis [Unknown]
